FAERS Safety Report 9118230 (Version 2)
Quarter: 2014Q1

REPORT INFORMATION
  Report Type: Spontaneous
  Country: US (occurrence: US)
  Receive Date: 20130128
  Receipt Date: 20140116
  Transmission Date: 20141002
  Serious: No
  Sender: FDA-Public Use
  Company Number: US-PFIZER INC-2013030629

PATIENT
  Age: 92 Year
  Sex: Female

DRUGS (5)
  1. TRIMETHOPRIM [Suspect]
     Dosage: UNK
  2. CIPRO [Suspect]
     Dosage: UNK
  3. MACROBID [Suspect]
     Dosage: UNK
  4. CEPHALEXIN [Suspect]
     Dosage: UNK
  5. IODINE [Suspect]
     Dosage: UNK

REACTIONS (1)
  - Drug hypersensitivity [Unknown]
